FAERS Safety Report 4777452-0 (Version None)
Quarter: 2005Q3

REPORT INFORMATION
  Report Type: 
  Country: None (occurrence: None)
  Receive Date: 20050923
  Receipt Date: 20050810
  Transmission Date: 20060218
  Serious: Yes (Other)
  Sender: FDA-Public Use
  Company Number: PHBS2005BE11648

PATIENT
  Age: 72 Year
  Sex: Female

DRUGS (8)
  1. ZOMETA [Suspect]
     Indication: METASTASES TO BONE
     Dosage: 4 MG, QMO
     Dates: start: 20020901, end: 20050715
  2. CITALOPRAM [Concomitant]
  3. TEGRETOL [Concomitant]
  4. TRANXENE [Concomitant]
  5. STEOVIT D3 [Concomitant]
  6. TRAZOLAN [Concomitant]
  7. ETUMINE [Concomitant]
  8. ZOLPIDEM [Concomitant]

REACTIONS (4)
  - ASEPTIC NECROSIS BONE [None]
  - JAW DISORDER [None]
  - OSTEONECROSIS [None]
  - SURGERY [None]
